FAERS Safety Report 8595051-X (Version None)
Quarter: 2012Q3

REPORT INFORMATION
  Report Type: 
  Country: None (occurrence: None)
  Receive Date: 20120815
  Receipt Date: 20120806
  Transmission Date: 20120928
  Serious: Yes (Hospitalization, Other)
  Sender: FDA-Public Use
  Company Number: CN-PFIZER INC-2012197299

PATIENT
  Age: 79 Year
  Sex: Female

DRUGS (2)
  1. CORDARONE [Suspect]
     Indication: ARRHYTHMIA
     Dosage: 200 MG (1 TABLET), 3X/DAY
     Route: 048
     Dates: start: 20081205, end: 20090401
  2. METOPROLOL TARTRATE [Suspect]
     Dosage: UNK

REACTIONS (10)
  - NAUSEA [None]
  - VOMITING [None]
  - URINARY INCONTINENCE [None]
  - DYSPNOEA [None]
  - CHEST DISCOMFORT [None]
  - CONVULSION [None]
  - ASPHYXIA [None]
  - HEART RATE DECREASED [None]
  - RESPIRATORY RATE DECREASED [None]
  - BLOOD PRESSURE INCREASED [None]
